FAERS Safety Report 25976921 (Version 2)
Quarter: 2025Q4

REPORT INFORMATION
  Report Type: Spontaneous
  Country: JP (occurrence: JP)
  Receive Date: 20251030
  Receipt Date: 20251104
  Transmission Date: 20260119
  Serious: Yes (Other)
  Sender: ROCHE
  Company Number: JP-CHUGAI-2025033790

PATIENT
  Age: 66 Year
  Sex: Female

DRUGS (2)
  1. AVASTIN [Suspect]
     Active Substance: BEVACIZUMAB
     Indication: Ovarian cancer
     Dosage: UNK
     Route: 042
  2. OLAPARIB [Suspect]
     Active Substance: OLAPARIB
     Indication: Ovarian cancer
     Dosage: UNK
     Route: 048

REACTIONS (1)
  - Urine protein/creatinine ratio increased [Unknown]
